FAERS Safety Report 10305146 (Version 1)
Quarter: 2014Q3

REPORT INFORMATION
  Report Type: Spontaneous
  Country: CA (occurrence: CA)
  Receive Date: 20140715
  Receipt Date: 20140715
  Transmission Date: 20150326
  Serious: Yes (Other)
  Sender: FDA-Public Use
  Company Number: CA-ELI_LILLY_AND_COMPANY-CA201407003510

PATIENT
  Sex: Male

DRUGS (15)
  1. PHENOBARBITAL. [Concomitant]
     Active Substance: PHENOBARBITAL
  2. INDAPAMIDE. [Concomitant]
     Active Substance: INDAPAMIDE
  3. DIGOXIN. [Concomitant]
     Active Substance: DIGOXIN
  4. LIPIDIL [Concomitant]
     Active Substance: FENOFIBRATE
  5. DILTIAZEM [Concomitant]
     Active Substance: DILTIAZEM
  6. WARFARIN [Concomitant]
     Active Substance: WARFARIN
  7. VITAMIN B6 [Concomitant]
     Active Substance: PYRIDOXINE HYDROCHLORIDE
  8. LANTUS [Concomitant]
     Active Substance: INSULIN GLARGINE
  9. VITAMIN B12                        /00260201/ [Concomitant]
  10. VITAMIN D                          /00107901/ [Concomitant]
     Active Substance: ERGOCALCIFEROL
  11. ROSUVASTATIN [Concomitant]
     Active Substance: ROSUVASTATIN
  12. CANDESARTAN [Concomitant]
     Active Substance: CANDESARTAN
  13. EZETROL [Concomitant]
     Active Substance: EZETIMIBE
  14. HUMALOG [Suspect]
     Active Substance: INSULIN LISPRO
     Indication: TYPE 2 DIABETES MELLITUS
     Dosage: UNK, TID
     Route: 065
  15. ALLOPURINOL. [Concomitant]
     Active Substance: ALLOPURINOL

REACTIONS (3)
  - Renal disorder [Unknown]
  - Heart rate irregular [Unknown]
  - Amnesia [Unknown]
